FAERS Safety Report 8452350-X (Version None)
Quarter: 2012Q2

REPORT INFORMATION
  Report Type: 
  Country: None (occurrence: None)
  Receive Date: 20120620
  Receipt Date: 20120611
  Transmission Date: 20120825
  Serious: Yes (Other)
  Sender: FDA-Public Use
  Company Number: US-ASTRAZENECA-2012SE39182

PATIENT
  Age: 31 Year
  Sex: Female
  Weight: 83.9 kg

DRUGS (3)
  1. ZOMIG [Suspect]
     Indication: MIGRAINE
     Dosage: 6 TIMES A MONTH OR NOT USUALLY
     Route: 045
     Dates: start: 20080101
  2. PHENTERMINE [Suspect]
     Indication: INCREASED APPETITE
  3. ZOMIG [Suspect]
     Indication: HEADACHE
     Dosage: 6 TIMES A MONTH OR NOT USUALLY
     Route: 045
     Dates: start: 20080101

REACTIONS (3)
  - ABORTION SPONTANEOUS [None]
  - PREGNANCY [None]
  - MATERNAL EXPOSURE DURING PREGNANCY [None]
